FAERS Safety Report 16344832 (Version 2)
Quarter: 2019Q3

REPORT INFORMATION
  Report Type: Report from Study
  Country: BR (occurrence: BR)
  Receive Date: 20190522
  Receipt Date: 20190803
  Transmission Date: 20191004
  Serious: Yes (Hospitalization, Other)
  Sender: FDA-Public Use
  Company Number: PHHY2018BR074641

PATIENT
  Age: 45 Year
  Sex: Female
  Weight: 89 kg

DRUGS (3)
  1. GILENYA [Suspect]
     Active Substance: FINGOLIMOD HYDROCHLORIDE
     Indication: MULTIPLE SCLEROSIS
     Dosage: 0.5 MG, QD
     Route: 048
     Dates: start: 20180731
  2. NATALIZUMAB [Suspect]
     Active Substance: NATALIZUMAB
     Indication: MULTIPLE SCLEROSIS
     Route: 065
  3. GILENYA [Suspect]
     Active Substance: FINGOLIMOD HYDROCHLORIDE
     Dosage: 0.5 MG, QD
     Route: 048

REACTIONS (9)
  - Aphthous ulcer [Not Recovered/Not Resolved]
  - Central nervous system lesion [Unknown]
  - JC polyomavirus test positive [Unknown]
  - Diabetic metabolic decompensation [Unknown]
  - Feeling abnormal [Unknown]
  - Thyroid mass [Unknown]
  - Thyroid calcification [Unknown]
  - Progressive multifocal leukoencephalopathy [Unknown]
  - Choking sensation [Unknown]

NARRATIVE: CASE EVENT DATE: 20180806
